FAERS Safety Report 18389896 (Version 1)
Quarter: 2020Q4

REPORT INFORMATION
  Report Type: Spontaneous
  Country: GB (occurrence: GB)
  Receive Date: 20201016
  Receipt Date: 20201016
  Transmission Date: 20210114
  Serious: Yes (Other)
  Sender: FDA-Public Use
  Company Number: GB-SUN PHARMACEUTICAL INDUSTRIES LTD-2020RR-264273

PATIENT
  Age: 32 Year
  Sex: Male

DRUGS (17)
  1. VINCRISTINE [Suspect]
     Active Substance: VINCRISTINE
     Indication: T-CELL LYMPHOMA
     Dosage: 2 CYCLES
     Route: 065
     Dates: start: 2011
  2. DOXORUBICIN [Suspect]
     Active Substance: DOXORUBICIN
     Dosage: 4 CYCLES
     Route: 065
     Dates: start: 2011, end: 201109
  3. PREGABALIN. [Suspect]
     Active Substance: PREGABALIN
     Indication: ANALGESIC THERAPY
     Dosage: UNK
     Route: 065
  4. CLONAZEPAM. [Suspect]
     Active Substance: CLONAZEPAM
     Indication: ANALGESIC THERAPY
     Dosage: UNK
     Route: 065
  5. OXYNORM [Suspect]
     Active Substance: OXYCODONE HYDROCHLORIDE
     Indication: ANALGESIC THERAPY
     Dosage: UNK
     Route: 065
  6. DOXORUBICIN [Suspect]
     Active Substance: DOXORUBICIN
     Indication: T-CELL LYMPHOMA
     Dosage: 2 CYCLES
     Route: 065
     Dates: start: 2011
  7. ETOPOSIDE. [Suspect]
     Active Substance: ETOPOSIDE
     Indication: T-CELL LYMPHOMA
     Dosage: 4 CYCLES
     Route: 065
     Dates: start: 2011, end: 201109
  8. DOTHIEPIN [Suspect]
     Active Substance: DOTHIEPIN\DOTHIEPIN HYDROCHLORIDE
     Indication: ANALGESIC THERAPY
     Dosage: UNK
     Route: 065
  9. VINCRISTINE [Suspect]
     Active Substance: VINCRISTINE
     Dosage: UNK
     Route: 065
     Dates: start: 2011, end: 201109
  10. OXYCODONE [Suspect]
     Active Substance: OXYCODONE
     Indication: ANALGESIC THERAPY
     Dosage: UNK
     Route: 065
  11. CYCLOPHOSPHAMIDE. [Suspect]
     Active Substance: CYCLOPHOSPHAMIDE
     Dosage: 4 CYCLES
     Route: 065
     Dates: start: 2011, end: 201109
  12. CYTARABINE. [Suspect]
     Active Substance: CYTARABINE
     Indication: T-CELL LYMPHOMA
     Dosage: 4 CYCLES
     Route: 065
     Dates: start: 2011, end: 201109
  13. IFOSFAMIDE. [Suspect]
     Active Substance: IFOSFAMIDE
     Indication: T-CELL LYMPHOMA
     Dosage: 4 CYCLES
     Route: 065
     Dates: start: 2011, end: 201109
  14. METHOTREXATE. [Suspect]
     Active Substance: METHOTREXATE
     Indication: T-CELL LYMPHOMA
     Dosage: 4 CYCLES
     Route: 065
     Dates: start: 2011, end: 201109
  15. AMITRIPTYLINE [Suspect]
     Active Substance: AMITRIPTYLINE
     Indication: ANALGESIC THERAPY
     Dosage: UNK
     Route: 065
  16. PREDNISOLONE. [Suspect]
     Active Substance: PREDNISOLONE
     Indication: T-CELL LYMPHOMA
     Dosage: 2 CYCLES
     Route: 065
     Dates: start: 2011
  17. CYCLOPHOSPHAMIDE. [Suspect]
     Active Substance: CYCLOPHOSPHAMIDE
     Indication: T-CELL LYMPHOMA
     Dosage: 2 CYCLES
     Route: 065
     Dates: start: 2011

REACTIONS (2)
  - Osteonecrosis [Unknown]
  - Headache [Unknown]
